FAERS Safety Report 8595685-2 (Version None)
Quarter: 2012Q3

REPORT INFORMATION
  Report Type: 
  Country: None (occurrence: None)
  Receive Date: 20120801
  Receipt Date: 20120718
  Transmission Date: 20120928
  Serious: Yes (Death, Hospitalization)
  Sender: FDA-Public Use
  Company Number: MCA-N-12-093

PATIENT
  Age: 65 Year
  Sex: Male

DRUGS (7)
  1. VALPROIC ACID [Suspect]
     Indication: CONVULSION
  2. LEVETIRACETAM [Concomitant]
  3. ETOPOSIDE [Concomitant]
  4. VITAMIN C INFUSION [Concomitant]
  5. TAXOL [Concomitant]
  6. CARBOPLATIN [Concomitant]
  7. MISTLETOE INJECTION [Concomitant]

REACTIONS (9)
  - CONFUSIONAL STATE [None]
  - CONVULSION [None]
  - CONDITION AGGRAVATED [None]
  - AGITATION [None]
  - NEUROLOGICAL DECOMPENSATION [None]
  - CEREBRAL HAEMORRHAGE [None]
  - BRAIN OEDEMA [None]
  - FATIGUE [None]
  - HEMIPARESIS [None]
